FAERS Safety Report 9554592 (Version 1)
Quarter: 2013Q3

REPORT INFORMATION
  Report Type: Spontaneous
  Country: JP (occurrence: JP)
  Receive Date: 20130925
  Receipt Date: 20130925
  Transmission Date: 20140515
  Serious: Yes (Death, Hospitalization)
  Sender: FDA-Public Use
  Company Number: JP-MYLANLABS-2013S1020891

PATIENT
  Age: 8 Decade
  Sex: Female

DRUGS (4)
  1. AZATHIOPRINE [Suspect]
     Indication: IMMUNOSUPPRESSANT DRUG THERAPY
     Route: 065
  2. MEROPENEM [Concomitant]
     Indication: ANTIBIOTIC THERAPY
     Route: 065
  3. COTRIMOXAZOLE [Concomitant]
     Indication: ANTIBIOTIC THERAPY
     Route: 065
  4. FLUCONAZOLE [Concomitant]
     Indication: ANTIFUNGAL TREATMENT
     Route: 065

REACTIONS (9)
  - Zygomycosis [Fatal]
  - Pulmonary haemorrhage [Fatal]
  - Pulmonary necrosis [Fatal]
  - Pulmonary infarction [Fatal]
  - Aspergillus infection [Not Recovered/Not Resolved]
  - Pneumothorax [Fatal]
  - Vasculitis [Not Recovered/Not Resolved]
  - Thrombosis [Not Recovered/Not Resolved]
  - Myocarditis [Not Recovered/Not Resolved]
